FAERS Safety Report 4394223-8 (Version None)
Quarter: 2004Q3

REPORT INFORMATION
  Report Type: 
  Country: None (occurrence: None)
  Receive Date: 20040712
  Receipt Date: 20040712
  Transmission Date: 20050211
  Serious: No
  Sender: FDA-Public Use
  Company Number: None

PATIENT
  Sex: Male
  Weight: 94.575 kg

DRUGS (3)
  1. CRESTOR [Suspect]
     Indication: HYPERCHOLESTEROLAEMIA
     Dates: start: 20040302, end: 20040708
  2. ATENOLOL [Concomitant]
  3. ZOLOFT [Concomitant]

REACTIONS (1)
  - RHABDOMYOLYSIS [None]
